FAERS Safety Report 23585658 (Version 1)
Quarter: 2024Q1

REPORT INFORMATION
  Report Type: Report from Study
  Country: DE (occurrence: DE)
  Receive Date: 20240301
  Receipt Date: 20240301
  Transmission Date: 20240410
  Serious: Yes (Hospitalization)
  Sender: FDA-Public Use
  Company Number: DE-SUN PHARMACEUTICAL INDUSTRIES LTD-2024RR-434068

PATIENT
  Age: 31 Year
  Sex: Female
  Weight: 84 kg

DRUGS (1)
  1. TILDRAKIZUMAB [Suspect]
     Active Substance: TILDRAKIZUMAB
     Indication: Psoriasis
     Dosage: 100 MILLIGRAM, DAILY
     Route: 058
     Dates: start: 20210518

REACTIONS (1)
  - Cervicobrachial syndrome [Recovered/Resolved]

NARRATIVE: CASE EVENT DATE: 20220204
